FAERS Safety Report 6960969-8 (Version None)
Quarter: 2010Q3

REPORT INFORMATION
  Report Type: 
  Country: None (occurrence: None)
  Receive Date: 20100830
  Receipt Date: 20100820
  Transmission Date: 20110219
  Serious: Yes (Hospitalization)
  Sender: FDA-Public Use
  Company Number: 2010SP044444

PATIENT
  Age: 52 Year
  Sex: Male
  Weight: 94.3482 kg

DRUGS (6)
  1. SAPHRIS [Suspect]
     Indication: SCHIZOPHRENIA
     Dosage: 10 MG;BID;SL
     Route: 060
     Dates: start: 20100601, end: 20100728
  2. TRAZODONE HCL [Concomitant]
  3. ZOLOFT [Concomitant]
  4. ATIVAN [Concomitant]
  5. SYNTHROID [Concomitant]
  6. VYTORIN [Concomitant]

REACTIONS (4)
  - APPARENT LIFE THREATENING EVENT [None]
  - HALLUCINATION, AUDITORY [None]
  - SHOPLIFTING [None]
  - SUICIDAL IDEATION [None]
